FAERS Safety Report 6532008-4 (Version None)
Quarter: 2009Q4

REPORT INFORMATION
  Report Type: 
  Country: None (occurrence: None)
  Receive Date: 20091223
  Receipt Date: 20090507
  Transmission Date: 20100525
  Serious: Yes (Other)
  Sender: FDA-Public Use
  Company Number: 2009213678

PATIENT

DRUGS (2)
  1. ATENOLOL [Suspect]
     Dosage: ORAL
     Route: 048
  2. SEROQUEL [Suspect]
     Dosage: ORAL
     Route: 048

REACTIONS (1)
  - ATRIAL FIBRILLATION [None]
